FAERS Safety Report 7033054-7 (Version None)
Quarter: 2010Q4

REPORT INFORMATION
  Report Type: 
  Country: None (occurrence: None)
  Receive Date: 20101007
  Receipt Date: 20100927
  Transmission Date: 20110411
  Serious: Yes (Other)
  Sender: FDA-Public Use
  Company Number: US-PFIZER INC-2010123229

PATIENT
  Sex: Male
  Weight: 122.45 kg

DRUGS (7)
  1. GEODON [Suspect]
     Indication: SCHIZOAFFECTIVE DISORDER
     Dosage: 80 MG, 2X/DAY
     Route: 048
     Dates: start: 20100301
  2. AMLODIPINE BESYLATE [Suspect]
     Indication: HYPERTENSION
     Dosage: 10 MG, DAILY
     Route: 048
     Dates: start: 20100401
  3. COZAAR [Concomitant]
     Indication: HYPERTENSION
     Dosage: UNK
  4. FOSAMPRENAVIR [Concomitant]
     Dosage: UNK
  5. WELLBUTRIN XL [Concomitant]
     Dosage: UNK
  6. TRAZODONE [Concomitant]
     Dosage: UNK
  7. CLONAZEPAM [Concomitant]
     Dosage: UNK

REACTIONS (5)
  - BLOOD CHOLESTEROL INCREASED [None]
  - BLOOD GLUCOSE INCREASED [None]
  - HYPERTENSION [None]
  - WEIGHT DECREASED [None]
  - WEIGHT INCREASED [None]
